FAERS Safety Report 4449955-X (Version None)
Quarter: 2004Q3

REPORT INFORMATION
  Report Type: 
  Country: None (occurrence: None)
  Receive Date: 20040915
  Receipt Date: 20040907
  Transmission Date: 20050211
  Serious: Yes (Disabling)
  Sender: FDA-Public Use
  Company Number: 200418973GDDC

PATIENT
  Age: 72 Year
  Sex: Female
  Weight: 76 kg

DRUGS (6)
  1. ARAVA [Suspect]
     Indication: RHEUMATOID ARTHRITIS
     Dosage: DOSE: 10-20
     Route: 048
     Dates: start: 20040114, end: 20040527
  2. ALLOPURINOL [Concomitant]
     Route: 048
     Dates: start: 19970101
  3. ASPIRIN [Concomitant]
     Route: 048
     Dates: start: 19990101
  4. GLUCOSAMINE [Concomitant]
     Dosage: DOSE: UNK
     Route: 048
  5. CHONDROITIN [Concomitant]
     Dosage: DOSE: UNK
  6. STARFLOWER OIL ^ROCHE^ [Concomitant]
     Dosage: DOSE: UNK
     Route: 048

REACTIONS (4)
  - ALOPECIA [None]
  - EOSINOPHILIA [None]
  - LIVER FUNCTION TEST ABNORMAL [None]
  - URTICARIA [None]
